FAERS Safety Report 7456529-5 (Version None)
Quarter: 2011Q2

REPORT INFORMATION
  Report Type: 
  Country: None (occurrence: None)
  Receive Date: 20110503
  Receipt Date: 20110427
  Transmission Date: 20111010
  Serious: Yes (Life-Threatening)
  Sender: FDA-Public Use
  Company Number: JP-PFIZER INC-2011075578

PATIENT
  Age: 81 Year
  Sex: Male

DRUGS (1)
  1. ZYVOX [Suspect]
     Route: 041

REACTIONS (1)
  - HYPONATRAEMIA [None]
